FAERS Safety Report 19502610 (Version 2)
Quarter: 2021Q3

REPORT INFORMATION
  Report Type: Spontaneous
  Country: MY (occurrence: MY)
  Receive Date: 20210707
  Receipt Date: 20210709
  Transmission Date: 20211014
  Serious: Yes (Other)
  Sender: FDA-Public Use
  Company Number: MY-TORRENT-00000286

PATIENT
  Age: 40 Year
  Sex: Female

DRUGS (1)
  1. ARIP MT 15 [Suspect]
     Active Substance: ARIPIPRAZOLE
     Indication: SCHIZOPHRENIA
     Route: 048

REACTIONS (2)
  - Extrapyramidal disorder [Recovered/Resolved]
  - Product substitution issue [Unknown]
